FAERS Safety Report 10925888 (Version 2)
Quarter: 2015Q3

REPORT INFORMATION
  Report Type: Spontaneous
  Country: US (occurrence: None)
  Receive Date: 20150129
  Receipt Date: 20150629
  Transmission Date: 20151125
  Serious: No
  Sender: FDA-Public Use
  Company Number: A-NJ2014-104807

PATIENT
  Age: 44 Year
  Sex: Male
  Weight: 66.7 kg

DRUGS (1)
  1. OPSUMIT [Suspect]
     Active Substance: MACITENTAN
     Indication: PULMONARY ARTERIAL HYPERTENSION
     Route: 048

REACTIONS (6)
  - Disorientation [None]
  - Headache [None]
  - Malaise [None]
  - Dyspnoea [None]
  - Dizziness [None]
  - Asthenia [None]
